FAERS Safety Report 5733551-8 (Version None)
Quarter: 2008Q2

REPORT INFORMATION
  Report Type: 
  Country: None (occurrence: None)
  Receive Date: 20080509
  Receipt Date: 20080428
  Transmission Date: 20081010
  Serious: Yes (Hospitalization)
  Sender: FDA-Public Use
  Company Number: US-JNJFOC-20080407507

PATIENT
  Age: 75 Year
  Sex: Female
  Weight: 65.77 kg

DRUGS (2)
  1. EXTRA STRENGTH TYLENOL [Suspect]
     Indication: PAIN
     Dosage: 2 CAPLETS ON 23-APR-2008 AND 2 CAPLETS IN AM ON 24-APR-2008
     Route: 048
  2. UNSPECIFIED MEDICATION [Concomitant]
     Indication: HYPOTENSION

REACTIONS (1)
  - DIPLOPIA [None]
